FAERS Safety Report 7029772-7 (Version None)
Quarter: 2010Q4

REPORT INFORMATION
  Report Type: 
  Country: None (occurrence: None)
  Receive Date: 20101005
  Receipt Date: 20101004
  Transmission Date: 20110411
  Serious: Yes (Other)
  Sender: FDA-Public Use
  Company Number: US-BRISTOL-MYERS SQUIBB COMPANY-15315963

PATIENT
  Age: 88 Year
  Sex: Female

DRUGS (3)
  1. COUMADIN [Suspect]
  2. LOVENOX [Suspect]
  3. PLAVIX [Suspect]

REACTIONS (2)
  - ARTERIAL OCCLUSIVE DISEASE [None]
  - OROPHARYNGEAL PAIN [None]
